FAERS Safety Report 5239746-4 (Version None)
Quarter: 2007Q1

REPORT INFORMATION
  Report Type: 
  Country: None (occurrence: None)
  Receive Date: 20070214
  Receipt Date: 20070214
  Transmission Date: 20070707
  Serious: Yes (Hospitalization)
  Sender: FDA-Public Use
  Company Number: None

PATIENT
  Age: 70 Year
  Sex: Male
  Weight: 82.5547 kg

DRUGS (11)
  1. VISIPAQUE [Suspect]
     Indication: CATHETERISATION CARDIAC
     Dosage: 170 ML ONE TIME
     Dates: start: 20070122, end: 20070122
  2. LISINOPRIL [Suspect]
     Indication: HYPERTENSION
     Dosage: 40 MG DAILY PO
     Route: 048
     Dates: start: 20000701, end: 20070212
  3. ASPIRIN [Concomitant]
  4. COMBIVENT [Concomitant]
  5. BRIMONIDINE TARTRATE [Concomitant]
  6. OPH SOLNS [Concomitant]
  7. FELODIPINE [Concomitant]
  8. GLYBURIDE [Concomitant]
  9. LISINOPRIL [Concomitant]
  10. OMEPRAZOLE [Concomitant]
  11. SIMVASTATIN [Concomitant]

REACTIONS (6)
  - HYPOTENSION [None]
  - NEPHRITIS INTERSTITIAL [None]
  - NEPHROPATHY [None]
  - RENAL FAILURE ACUTE [None]
  - RENAL INJURY [None]
  - RENAL TUBULAR NECROSIS [None]
